FAERS Safety Report 22058065 (Version 6)
Quarter: 2023Q4

REPORT INFORMATION
  Report Type: Other
  Country: GB (occurrence: GB)
  Receive Date: 20230303
  Receipt Date: 20231109
  Transmission Date: 20240109
  Serious: Yes (Hospitalization, Other)
  Sender: FDA-Public Use
  Company Number: GB-002147023-NVSC2022GB195952

PATIENT

DRUGS (2)
  1. FULVESTRANT [Suspect]
     Active Substance: FULVESTRANT
     Indication: Breast cancer
     Dosage: UNK
     Route: 065
     Dates: start: 202207
  2. KISQALI [Suspect]
     Active Substance: RIBOCICLIB
     Indication: Breast cancer
     Dosage: UNK (PATIENT IS CYCLE 2, DAY 15 OF KISQALI)
     Route: 048
     Dates: start: 202207

REACTIONS (11)
  - Dysphagia [Unknown]
  - Food poisoning [Unknown]
  - Hypertension [Unknown]
  - Odynophagia [Unknown]
  - Tonsillitis [Unknown]
  - Menstruation irregular [Unknown]
  - Type 2 diabetes mellitus [Not Recovered/Not Resolved]
  - Neutropenia [Unknown]
  - Neutrophil count decreased [Unknown]
  - Fatigue [Unknown]
  - Oropharyngeal pain [Unknown]

NARRATIVE: CASE EVENT DATE: 20221201
